FAERS Safety Report 25720012 (Version 1)
Quarter: 2025Q3

REPORT INFORMATION
  Report Type: Spontaneous
  Country: US (occurrence: US)
  Receive Date: 20250825
  Receipt Date: 20250825
  Transmission Date: 20251021
  Serious: Yes (Other)
  Sender: HIKMA
  Company Number: US-HIKMA PHARMACEUTICALS USA INC.-US-H14001-25-09568

PATIENT
  Age: 40 Year
  Sex: Female

DRUGS (8)
  1. LEVOTHYROXINE [Suspect]
     Active Substance: LEVOTHYROXINE
     Dosage: 100 MICROGRAM, QD, ONE MONTH LATER
     Route: 065
  2. LEVOTHYROXINE [Suspect]
     Active Substance: LEVOTHYROXINE
     Indication: Thyroiditis fibrous chronic
     Dosage: 88 MICROGRAM, QD
     Route: 065
  3. MYCOPHENOLATE MOFETIL [Suspect]
     Active Substance: MYCOPHENOLATE MOFETIL
     Indication: Thyroiditis fibrous chronic
     Dosage: 1000 MILLIGRAM, BID
     Route: 065
  4. PREDNISONE [Suspect]
     Active Substance: PREDNISONE
     Dosage: 10 MILLIGRAM, QD
     Route: 065
  5. PREDNISONE [Suspect]
     Active Substance: PREDNISONE
     Indication: Thyroiditis fibrous chronic
     Dosage: 30 MILLIGRAM, QD
     Route: 065
  6. RALOXIFENE [Suspect]
     Active Substance: RALOXIFENE
     Indication: Thyroiditis fibrous chronic
     Route: 065
  7. RITUXIMAB [Suspect]
     Active Substance: RITUXIMAB
     Indication: Thyroiditis fibrous chronic
     Route: 065
  8. TAMOXIFEN [Suspect]
     Active Substance: TAMOXIFEN
     Indication: Thyroiditis fibrous chronic
     Dosage: 20 MILLIGRAM, QD
     Route: 065

REACTIONS (3)
  - Weight increased [Unknown]
  - Mood altered [Unknown]
  - Drug ineffective [Not Recovered/Not Resolved]
